FAERS Safety Report 9401523 (Version 1)
Quarter: 2013Q3

REPORT INFORMATION
  Report Type: Report from Study
  Country: JP (occurrence: JP)
  Receive Date: 20130716
  Receipt Date: 20130716
  Transmission Date: 20140515
  Serious: Yes (Other)
  Sender: FDA-Public Use
  Company Number: JP-009507513-1304JPN000505

PATIENT
  Age: 82 Year
  Sex: Male

DRUGS (7)
  1. GLACTIV [Suspect]
     Indication: TYPE 2 DIABETES MELLITUS
     Dosage: 50 MG, QD
     Route: 048
     Dates: start: 20120124, end: 20120723
  2. NOVOLIN 30R [Concomitant]
  3. ARTIST [Concomitant]
  4. MOHRUS [Concomitant]
  5. CERNILTON [Concomitant]
  6. HARNAL [Concomitant]
  7. COMELIAN [Concomitant]

REACTIONS (1)
  - Hypoglycaemia [Recovered/Resolved]
